FAERS Safety Report 8373521-7 (Version None)
Quarter: 2012Q2

REPORT INFORMATION
  Report Type: 
  Country: None (occurrence: None)
  Receive Date: 20120521
  Receipt Date: 20110722
  Transmission Date: 20120825
  Serious: No
  Sender: FDA-Public Use
  Company Number: US-TEVA-2011003866

PATIENT
  Sex: Male
  Weight: 95.34 kg

DRUGS (4)
  1. SEROQUEL [Concomitant]
  2. TREANDA [Suspect]
     Indication: CHRONIC LYMPHOCYTIC LEUKAEMIA
     Route: 042
  3. RITUXAN [Concomitant]
  4. LAMICTAL [Concomitant]

REACTIONS (1)
  - INFUSION SITE EXTRAVASATION [None]
